FAERS Safety Report 8890828 (Version 1)
Quarter: 2012Q4

REPORT INFORMATION
  Report Type: Report from Study
  Country: BE (occurrence: BE)
  Receive Date: 20121107
  Receipt Date: 20121107
  Transmission Date: 20130627
  Serious: Yes (Hospitalization)
  Sender: FDA-Public Use
  Company Number: BE-ROCHE-1152794

PATIENT
  Age: 6 Year
  Sex: Male
  Weight: 20.5 kg

DRUGS (7)
  1. BEVACIZUMAB [Suspect]
     Indication: NEOPLASM MALIGNANT
     Dosage: LAST DOSE PRIOR TO SAE:27/JUL/2012
     Route: 042
     Dates: start: 20120414
  2. VINCRISTINE [Suspect]
     Indication: NEOPLASM MALIGNANT
     Dosage: LAST DOSE OPRIOR TO SAE:28/SEP/2012
     Route: 042
     Dates: start: 20120414
  3. IFOSFAMIDE [Suspect]
     Indication: NEOPLASM MALIGNANT
     Dosage: 3 g/m x 2. LAST DOSE PRIOR TO SAE:29/SEP/2012
     Route: 042
     Dates: start: 20120414
  4. ACTINOMYCIN D [Suspect]
     Indication: NEOPLASM MALIGNANT
     Dosage: LAST DOSE PRIOR TO SAE:17/AUG/2012
     Route: 042
  5. DOXORUBICIN [Suspect]
     Indication: NEOPLASM MALIGNANT
     Dosage: LAST DOS EPRIOR TIO SAE: 16/JUN/2012
     Route: 042
     Dates: start: 20120414
  6. ZOVIRAX [Concomitant]
     Route: 065
     Dates: start: 20120506
  7. EUSAPRIM FORTE [Concomitant]
     Route: 065
     Dates: start: 20120506

REACTIONS (1)
  - Anal fissure [Recovered/Resolved]
